FAERS Safety Report 25376282 (Version 1)
Quarter: 2025Q2

REPORT INFORMATION
  Report Type: Spontaneous
  Country: TR (occurrence: TR)
  Receive Date: 20250529
  Receipt Date: 20250529
  Transmission Date: 20250716
  Serious: Yes (Other)
  Sender: PRINSTON PHARMACEUTICAL
  Company Number: TR-PRINSTON PHARMACEUTICAL INC.-2025PRN00182

PATIENT
  Age: 62 Year
  Sex: Female

DRUGS (1)
  1. DULOXETINE [Suspect]
     Active Substance: DULOXETINE
     Indication: Depression
     Dosage: 30 MG, 1X/DAY

REACTIONS (1)
  - Gastritis erosive [Recovered/Resolved]
